FAERS Safety Report 10173119 (Version 1)
Quarter: 2014Q2

REPORT INFORMATION
  Report Type: Spontaneous
  Country: US (occurrence: US)
  Receive Date: 20140515
  Receipt Date: 20140515
  Transmission Date: 20141212
  Serious: No
  Sender: FDA-Public Use
  Company Number: US-PFIZER INC-2014129639

PATIENT
  Age: 66 Year
  Sex: Male
  Weight: 115.65 kg

DRUGS (4)
  1. NEURONTIN [Suspect]
     Indication: CEREBROVASCULAR ACCIDENT
     Dosage: UNK
  2. AMITRIPTYLINE [Suspect]
     Indication: CEREBROVASCULAR ACCIDENT
  3. NORTRIPTYLINE [Suspect]
     Indication: CEREBROVASCULAR ACCIDENT
  4. CYMBALTA [Suspect]
     Indication: CEREBROVASCULAR ACCIDENT

REACTIONS (1)
  - Drug ineffective [Unknown]
